FAERS Safety Report 9601837 (Version 1)
Quarter: 2013Q4

REPORT INFORMATION
  Report Type: Spontaneous
  Country: US (occurrence: US)
  Receive Date: 20131007
  Receipt Date: 20131007
  Transmission Date: 20140711
  Serious: Yes (Death)
  Sender: FDA-Public Use
  Company Number: US-BAYER-2013-119693

PATIENT
  Age: 23 Year
  Sex: Female

DRUGS (4)
  1. BEYAZ [Suspect]
  2. VYVANSE [Concomitant]
     Dosage: 70 MG, EVERY DAY
     Route: 048
  3. GEODON [Concomitant]
     Dosage: 80 MG, HS
     Route: 048
  4. ADVIL [IBUPROFEN] [Concomitant]

REACTIONS (1)
  - Arrhythmia [Fatal]
